FAERS Safety Report 4842850-3 (Version None)
Quarter: 2005Q4

REPORT INFORMATION
  Report Type: 
  Country: None (occurrence: None)
  Receive Date: 20051130
  Receipt Date: 20051123
  Transmission Date: 20060501
  Serious: Yes (Other)
  Sender: FDA-Public Use
  Company Number: 2005053731

PATIENT
  Age: 56 Year
  Sex: Male

DRUGS (6)
  1. CABERGOLINE [Suspect]
     Indication: PARKINSON'S DISEASE
     Dosage: 6 MG (4 MG), ORAL
     Route: 048
     Dates: start: 20021009, end: 20051030
  2. ELDEPRYL [Concomitant]
  3. REQUIP (ROPINDROLE HYDROCHLORIDE) [Concomitant]
  4. SINEMET [Concomitant]
  5. COMTESS (ENTACAPONE) [Concomitant]
  6. SIFROL (PRAMIPEXOLE DIHYDROCHLORIDE) [Concomitant]

REACTIONS (7)
  - CHRONIC OBSTRUCTIVE PULMONARY DISEASE [None]
  - DRUG EFFECT DECREASED [None]
  - EMPHYSEMA [None]
  - INTERSTITIAL LUNG DISEASE [None]
  - PLEURISY [None]
  - PULMONARY FIBROSIS [None]
  - PULMONARY FUNCTION TEST DECREASED [None]
